FAERS Safety Report 10747228 (Version 3)
Quarter: 2015Q4

REPORT INFORMATION
  Report Type: Report from Study
  Country: US (occurrence: US)
  Receive Date: 20150129
  Receipt Date: 20151204
  Transmission Date: 20160304
  Serious: Yes (Other)
  Sender: FDA-Public Use
  Company Number: US-AMGEN-USASP2015007549

PATIENT
  Age: 29 Year
  Sex: Female
  Weight: 56.24 kg

DRUGS (3)
  1. ENBREL [Suspect]
     Active Substance: ETANERCEPT
     Dosage: 50 MG, QWK
     Route: 065
     Dates: start: 201509
  2. SULPHASALAZINE [Suspect]
     Active Substance: SULFASALAZINE
     Indication: ANKYLOSING SPONDYLITIS
     Route: 065
  3. ENBREL [Suspect]
     Active Substance: ETANERCEPT
     Indication: ANKYLOSING SPONDYLITIS
     Dosage: 25 MG, 2 TIMES/WK
     Route: 065
     Dates: start: 20150112, end: 20150112

REACTIONS (10)
  - Headache [Unknown]
  - Pupils unequal [Unknown]
  - Migraine [Unknown]
  - Condition aggravated [Unknown]
  - Nerve compression [Unknown]
  - Musculoskeletal stiffness [Unknown]
  - Ill-defined disorder [Unknown]
  - Back pain [Unknown]
  - Multiple sclerosis [Unknown]
  - No therapeutic response [Unknown]

NARRATIVE: CASE EVENT DATE: 2015
